FAERS Safety Report 21289453 (Version 1)
Quarter: 2022Q3

REPORT INFORMATION
  Report Type: Spontaneous
  Country: US (occurrence: US)
  Receive Date: 20220902
  Receipt Date: 20220902
  Transmission Date: 20221026
  Serious: No
  Sender: FDA-Public Use
  Company Number: US-BRISTOL-MYERS SQUIBB COMPANY-2022-099774

PATIENT
  Age: 82 Year
  Sex: Female

DRUGS (1)
  1. REVLIMID [Suspect]
     Active Substance: LENALIDOMIDE
     Indication: Anaemia
     Dosage: TAKE 1 CAPSULE BY MOUTH DAILY MONDAY-FRIDAY FOR 2 WEEKS AND THEN REST FOR 1 WEEK. REPEAT. DO NOT CRU
     Route: 048

REACTIONS (2)
  - Dysgeusia [Unknown]
  - Intentional product use issue [Unknown]
